FAERS Safety Report 9432913 (Version 1)
Quarter: 2013Q3

REPORT INFORMATION
  Report Type: Report from Study
  Country: CA (occurrence: CA)
  Receive Date: 20130731
  Receipt Date: 20130731
  Transmission Date: 20140515
  Serious: Yes (Other)
  Sender: FDA-Public Use
  Company Number: CA-JNJFOC-20130714350

PATIENT
  Age: 23 Year
  Sex: Female
  Weight: 82.1 kg

DRUGS (7)
  1. REMICADE [Suspect]
     Indication: CROHN^S DISEASE
     Route: 042
     Dates: start: 20090130
  2. IMURAN [Concomitant]
     Route: 065
  3. VITAMIN D [Concomitant]
     Route: 065
  4. CALCIUM [Concomitant]
     Route: 065
  5. FISH OIL [Concomitant]
     Route: 065
  6. VITAMIN B12 [Concomitant]
     Route: 065
  7. MULTIVITAMINS [Concomitant]
     Route: 065

REACTIONS (4)
  - Brain neoplasm benign [Unknown]
  - Convulsion [Unknown]
  - Melanocytic naevus [Unknown]
  - Amenorrhoea [Unknown]
